FAERS Safety Report 5861115-4 (Version None)
Quarter: 2008Q3

REPORT INFORMATION
  Report Type: 
  Country: None (occurrence: None)
  Receive Date: 20080827
  Receipt Date: 20080222
  Transmission Date: 20090109
  Serious: No
  Sender: FDA-Public Use
  Company Number: US-ABBOTT-08P-163-0439362-00

PATIENT
  Sex: Female
  Weight: 81.72 kg

DRUGS (3)
  1. NIASPAN [Suspect]
     Indication: BLOOD CHOLESTEROL INCREASED
     Route: 048
     Dates: start: 20080221
  2. PREDNISONE TAB [Concomitant]
     Indication: ARTHRALGIA
     Route: 048
  3. IBUPROFEN [Concomitant]
     Indication: HEADACHE
     Route: 048

REACTIONS (3)
  - DIZZINESS [None]
  - FEELING ABNORMAL [None]
  - PRURITUS [None]
